FAERS Safety Report 15406386 (Version 1)
Quarter: 2018Q3

REPORT INFORMATION
  Report Type: Spontaneous
  Country: US (occurrence: US)
  Receive Date: 20180920
  Receipt Date: 20180920
  Transmission Date: 20181010
  Serious: Yes (Death)
  Sender: FDA-Public Use
  Company Number: PHHY2018US097999

PATIENT
  Age: 55 Year
  Sex: Female

DRUGS (1)
  1. AMITRIPTYLINE [Suspect]
     Active Substance: AMITRIPTYLINE
     Indication: PRODUCT USED FOR UNKNOWN INDICATION
     Route: 065

REACTIONS (8)
  - Electrocardiogram QT prolonged [Fatal]
  - Electrocardiogram QRS complex prolonged [Fatal]
  - Acute kidney injury [Fatal]
  - Hypotension [Fatal]
  - Depressed level of consciousness [Fatal]
  - Seizure [Fatal]
  - Toxicity to various agents [Fatal]
  - Respiratory depression [Fatal]
